FAERS Safety Report 6267087-5 (Version None)
Quarter: 2009Q3

REPORT INFORMATION
  Report Type: 
  Country: None (occurrence: None)
  Receive Date: 20090714
  Receipt Date: 20090707
  Transmission Date: 20100115
  Serious: Yes (Hospitalization)
  Sender: FDA-Public Use
  Company Number: FR-BRISTOL-MYERS SQUIBB COMPANY-14697338

PATIENT
  Age: 64 Year
  Sex: Male

DRUGS (10)
  1. GLUCOPHAGE [Suspect]
     Indication: INSULIN-REQUIRING TYPE 2 DIABETES MELLITUS
     Route: 048
     Dates: end: 20090218
  2. TRIATEC [Concomitant]
  3. ISOPTIN [Concomitant]
  4. TAHOR [Concomitant]
  5. IRBESARTAN [Concomitant]
  6. ESIDRIX [Concomitant]
  7. BI-PROFENID [Concomitant]
     Dates: start: 20090210
  8. PANTOPRAZOLE SODIUM [Concomitant]
     Dates: start: 20090210
  9. PARACETAMOL [Concomitant]
     Dates: start: 20090210
  10. DI-ANTALVIC [Concomitant]
     Dates: start: 20090210

REACTIONS (2)
  - LACTIC ACIDOSIS [None]
  - RENAL FAILURE ACUTE [None]
